FAERS Safety Report 12463528 (Version 1)
Quarter: 2016Q2

REPORT INFORMATION
  Report Type: Spontaneous
  Country: US (occurrence: US)
  Receive Date: 20160614
  Receipt Date: 20160614
  Transmission Date: 20160815
  Serious: Yes (Hospitalization, Other)
  Sender: FDA-Public Use
  Company Number: US-ALEMBIC PHARMACUETICALS LIMITED-2016SCAL000423

PATIENT

DRUGS (3)
  1. ARIPIPRAZOLE. [Suspect]
     Active Substance: ARIPIPRAZOLE
     Indication: ANOREXIA NERVOSA
     Dosage: 2 MG, QD, AT BEDTIME
  2. FLUOXETINE HYDROCHLORIDE. [Suspect]
     Active Substance: FLUOXETINE HYDROCHLORIDE
     Indication: ANXIETY
     Dosage: 10 MG, UNK
  3. ATIVAN [Suspect]
     Active Substance: LORAZEPAM
     Indication: MERYCISM
     Dosage: 0.5 MG, QD, AT 6 PM

REACTIONS (8)
  - Bradycardia [Unknown]
  - Weight decreased [Unknown]
  - Febrile infection [Unknown]
  - Viral infection [Unknown]
  - Weight increased [Unknown]
  - Off label use [Unknown]
  - Therapeutic response unexpected [Unknown]
  - Diarrhoea [Unknown]
